FAERS Safety Report 6437143-7 (Version None)
Quarter: 2009Q4

REPORT INFORMATION
  Report Type: 
  Country: None (occurrence: None)
  Receive Date: 20091102
  Receipt Date: 20091023
  Transmission Date: 20100525
  Serious: Yes (Hospitalization)
  Sender: FDA-Public Use
  Company Number: 20091023CINRY1220

PATIENT
  Age: 19 Year
  Sex: Female

DRUGS (2)
  1. CINRYZE [Suspect]
     Indication: HEREDITARY ANGIOEDEMA
  2. CINRYZE [Suspect]
     Indication: PROPHYLAXIS

REACTIONS (5)
  - ABDOMINAL DISTENSION [None]
  - DRUG DOSE OMISSION [None]
  - NAUSEA [None]
  - OESOPHAGEAL RUPTURE [None]
  - VOMITING [None]
